FAERS Safety Report 5638957-3 (Version None)
Quarter: 2008Q1

REPORT INFORMATION
  Report Type: 
  Country: None (occurrence: None)
  Receive Date: 20080225
  Receipt Date: 20080225
  Transmission Date: 20080703
  Serious: Yes (Other)
  Sender: FDA-Public Use
  Company Number: None

PATIENT
  Age: 52 Year
  Sex: Male
  Weight: 72.5755 kg

DRUGS (1)
  1. MECLIZINE [Suspect]
     Indication: MOTION SICKNESS
     Dosage: 1 TAB THAT AM PO
     Route: 048
     Dates: start: 20080223, end: 20080223

REACTIONS (11)
  - ASTHENIA [None]
  - BLOOD PRESSURE DECREASED [None]
  - CONVULSION [None]
  - DISCOMFORT [None]
  - DIZZINESS [None]
  - GAIT DISTURBANCE [None]
  - HEAD TITUBATION [None]
  - HYPERHIDROSIS [None]
  - MYALGIA [None]
  - PALLOR [None]
  - STARING [None]
